FAERS Safety Report 8470489 (Version 6)
Quarter: 2013Q1

REPORT INFORMATION
  Report Type: Report from Study
  Country: CA (occurrence: CA)
  Receive Date: 20120321
  Receipt Date: 20130111
  Transmission Date: 20140127
  Serious: Yes (Other)
  Sender: FDA-Public Use
  Company Number: CA-ROCHE-1048894

PATIENT
  Age: 29 Year
  Sex: Female
  Weight: 113.5 kg

DRUGS (16)
  1. RITUXIMAB [Suspect]
     Indication: RHEUMATOID ARTHRITIS
     Route: 042
     Dates: start: 20120309
  2. RITUXIMAB [Suspect]
     Indication: SJOGREN^S SYNDROME
     Route: 042
     Dates: start: 20120416
  3. RITUXIMAB [Suspect]
     Route: 042
     Dates: start: 20120423
  4. RITUXIMAB [Suspect]
     Route: 042
     Dates: start: 20121130
  5. PREDNISONE [Concomitant]
  6. PANTOLOC [Concomitant]
  7. LYRICA [Concomitant]
  8. IMOVANE [Concomitant]
  9. ATIVAN [Concomitant]
  10. CLONAZEPAM [Concomitant]
  11. LASIX [Concomitant]
  12. FOLIC ACID [Concomitant]
  13. NORTRIPTYLINE [Concomitant]
  14. DIPHENHYDRAMINE HCL [Concomitant]
     Indication: PREMEDICATION
     Route: 048
     Dates: start: 20120309
  15. ACETAMINOFEN [Concomitant]
     Indication: PREMEDICATION
     Route: 048
     Dates: start: 20120309
  16. METHYLPREDNISOLONE [Concomitant]
     Route: 042
     Dates: start: 20120309

REACTIONS (6)
  - Hypoglycaemia [Recovered/Resolved]
  - Pain of skin [Recovered/Resolved]
  - Skin burning sensation [Recovered/Resolved]
  - Infusion related reaction [Recovered/Resolved]
  - Fatigue [Not Recovered/Not Resolved]
  - Rash [Recovered/Resolved]
